FAERS Safety Report 5805834-4 (Version None)
Quarter: 2008Q3

REPORT INFORMATION
  Report Type: 
  Country: None (occurrence: None)
  Receive Date: 20080708
  Receipt Date: 20080626
  Transmission Date: 20090109
  Serious: Yes (Hospitalization)
  Sender: FDA-Public Use
  Company Number: US023494

PATIENT
  Age: 75 Year
  Sex: Male
  Weight: 93.5 kg

DRUGS (7)
  1. ARSENIC TRIOXIDE [Suspect]
     Indication: ACUTE MYELOID LEUKAEMIA
     Dosage: 23 MGQD FOR 5 DAYS EACH WEEK TIMES 2 WEEKS INTRAVENOUS
     Route: 042
     Dates: start: 20080428, end: 20080508
  2. CYTARABINE [Concomitant]
  3. NORVASC [Concomitant]
  4. ACYCLOVIR [Concomitant]
  5. VORICONAZOLE [Concomitant]
  6. LEVAQUIN [Concomitant]
  7. K-DUR [Concomitant]

REACTIONS (8)
  - ASTHENIA [None]
  - ATRIOVENTRICULAR BLOCK FIRST DEGREE [None]
  - BLOOD ALKALINE PHOSPHATASE INCREASED [None]
  - ENTEROCOCCAL BACTERAEMIA [None]
  - FEELING ABNORMAL [None]
  - PANCYTOPENIA [None]
  - SUPRAVENTRICULAR EXTRASYSTOLES [None]
  - VENTRICULAR EXTRASYSTOLES [None]
